FAERS Safety Report 8373617-X (Version None)
Quarter: 2012Q2

REPORT INFORMATION
  Report Type: 
  Country: None (occurrence: None)
  Receive Date: 20120521
  Receipt Date: 20120207
  Transmission Date: 20120825
  Serious: No
  Sender: FDA-Public Use
  Company Number: US-TEVA-321364USA

PATIENT
  Age: 65 Year
  Sex: Male

DRUGS (2)
  1. TREANDA [Suspect]
     Indication: CHRONIC LYMPHOCYTIC LEUKAEMIA
     Dosage: 100 MILLIGRAM;
     Route: 042
  2. TREANDA [Suspect]
     Dosage: 75 MILLIGRAM;
     Route: 042

REACTIONS (3)
  - RASH PRURITIC [None]
  - BLOOD COUNT ABNORMAL [None]
  - SKIN EXFOLIATION [None]
